FAERS Safety Report 9293878 (Version 1)
Quarter: 2013Q1

REPORT INFORMATION
  Report Type: Spontaneous
  Country: US (occurrence: None)
  Receive Date: 20121217
  Receipt Date: 20121217
  Transmission Date: 20140127
  Serious: Yes (Hospitalization)
  Sender: FDA-Public Use
  Company Number: 1000040487

PATIENT
  Age: 70 Year
  Sex: Female

DRUGS (10)
  1. NAMENDA [Suspect]
     Indication: DEMENTIA ALZHEIMER^S TYPE
     Dates: start: 2010
  2. CITALOPRAM [Suspect]
     Indication: DEPRESSION
     Dosage: 20 MG, 1 IN 1 D
     Route: 048
  3. LORAZEPAM [Suspect]
     Indication: ANXIETY
     Dosage: THREE TIMES DAILY AS NEEDED
  4. EXELON [Concomitant]
  5. SIMVASTATIN [Concomitant]
  6. MULTIVITAMIN [Concomitant]
  7. VITAMIN B [Concomitant]
  8. OMEGA -3 [Concomitant]
  9. CALCIUM [Concomitant]
  10. VITAMIN D3 [Concomitant]

REACTIONS (10)
  - Urinary tract infection [None]
  - Fall [None]
  - Asthenia [None]
  - Fatigue [None]
  - Somnolence [None]
  - Abdominal pain upper [None]
  - Decreased appetite [None]
  - Nausea [None]
  - Anxiety [None]
  - Depression [None]
